FAERS Safety Report 4765761-0 (Version None)
Quarter: 2005Q3

REPORT INFORMATION
  Report Type: 
  Country: None (occurrence: None)
  Receive Date: 20050906
  Receipt Date: 20050823
  Transmission Date: 20060218
  Serious: Yes (Life-Threatening, Hospitalization)
  Sender: FDA-Public Use
  Company Number: 2005FR-00265

PATIENT
  Sex: Male

DRUGS (14)
  1. IBUPROFEN [Suspect]
     Indication: ANALGESIC EFFECT
     Dosage: 400MG, TDS, ORAL
     Route: 048
     Dates: start: 20050601, end: 20050721
  2. OMEPRAZOLE [Concomitant]
  3. VITAMIN B COMPLEX CAP [Concomitant]
  4. MOXONIDINE [Concomitant]
  5. FOSINOPRIL SODIUM [Concomitant]
  6. ALLOPURINOL [Concomitant]
  7. ALBUTEROL SULFATE HFA [Concomitant]
  8. HUMULIN S [Concomitant]
  9. HUMULIN L [Concomitant]
  10. GEMFIBROZIL [Concomitant]
  11. METFORMIN [Concomitant]
  12. PRAXILENE [Concomitant]
  13. FUROSEMIDE [Concomitant]
  14. BECLOMETHASONE DIPROPIONATE [Concomitant]

REACTIONS (1)
  - RENAL FAILURE ACUTE [None]
